FAERS Safety Report 22867555 (Version 2)
Quarter: 2023Q4

REPORT INFORMATION
  Report Type: Spontaneous
  Country: US (occurrence: US)
  Receive Date: 20230825
  Receipt Date: 20231221
  Transmission Date: 20240109
  Serious: Yes (Hospitalization, Other)
  Sender: FDA-Public Use
  Company Number: US-PFIZER INC-202300283973

PATIENT
  Age: 28 Year
  Sex: Female
  Weight: 61.23 kg

DRUGS (1)
  1. OXBRYTA [Suspect]
     Active Substance: VOXELOTOR
     Indication: Sickle cell anaemia with crisis
     Dosage: UNK
     Dates: start: 202308

REACTIONS (2)
  - Condition aggravated [Unknown]
  - Sickle cell anaemia with crisis [Not Recovered/Not Resolved]
